FAERS Safety Report 17233676 (Version 1)
Quarter: 2020Q1

REPORT INFORMATION
  Report Type: Spontaneous
  Country: US (occurrence: US)
  Receive Date: 20200105
  Receipt Date: 20200105
  Transmission Date: 20200409
  Serious: No
  Sender: FDA-Public Use
  Company Number: US-009507513-1912USA007555

PATIENT
  Age: 74 Year
  Sex: Female

DRUGS (3)
  1. VENTOLINE (ALBUTEROL SULFATE) [Concomitant]
     Active Substance: ALBUTEROL SULFATE
  2. DULERA [Suspect]
     Active Substance: FORMOTEROL FUMARATE DIHYDRATE\MOMETASONE FUROATE
     Indication: CHRONIC OBSTRUCTIVE PULMONARY DISEASE
     Dosage: 2 PUFFS, QD
     Route: 055
     Dates: start: 2010
  3. SPIRIVA [Concomitant]
     Active Substance: TIOTROPIUM BROMIDE MONOHYDRATE

REACTIONS (4)
  - Dyspnoea [Recovering/Resolving]
  - Product use in unapproved indication [Unknown]
  - Wheezing [Recovering/Resolving]
  - Therapeutic response delayed [Recovering/Resolving]

NARRATIVE: CASE EVENT DATE: 2010
